FAERS Safety Report 5660056-5 (Version None)
Quarter: 2008Q1

REPORT INFORMATION
  Report Type: 
  Country: None (occurrence: None)
  Receive Date: 20080311
  Receipt Date: 20070828
  Transmission Date: 20080703
  Serious: No
  Sender: FDA-Public Use
  Company Number: US-BAYER-200712787BCC

PATIENT
  Age: 57 Year
  Sex: Female
  Weight: 109 kg

DRUGS (4)
  1. ALEVE [Suspect]
     Indication: JOINT INJURY
     Dosage: TOTAL DAILY DOSE: 880 MG  UNIT DOSE: 220 MG
     Route: 048
     Dates: start: 20070827
  2. ALEVE [Suspect]
     Dosage: TOTAL DAILY DOSE: 440 MG  UNIT DOSE: 220 MG
     Route: 048
     Dates: start: 20070828
  3. ASPIRIN [Concomitant]
     Dosage: TOTAL DAILY DOSE: 81 MG  UNIT DOSE: 81 MG
     Route: 048
  4. HYDROCHLOROTHIAZIDE [Concomitant]

REACTIONS (1)
  - NO ADVERSE EVENT [None]
